FAERS Safety Report 20012258 (Version 1)
Quarter: 2021Q4

REPORT INFORMATION
  Report Type: Spontaneous
  Country: CZ (occurrence: CZ)
  Receive Date: 20211029
  Receipt Date: 20211029
  Transmission Date: 20220303
  Serious: Yes (Hospitalization, Other)
  Sender: FDA-Public Use
  Company Number: CZ-TEVA-2021-CZ-1970333

PATIENT
  Age: 6 Decade
  Sex: Male

DRUGS (3)
  1. LEUCOVORIN [Suspect]
     Active Substance: LEUCOVORIN
     Indication: Colorectal cancer metastatic
     Dosage: FOLFIRI REGIMEN 1 CYCLE
     Route: 065
     Dates: start: 202010, end: 202010
  2. IRINOTECAN [Suspect]
     Active Substance: IRINOTECAN
     Indication: Colorectal cancer metastatic
     Dosage: FOLFIRI REGIMEN 1 CYCLE
     Route: 065
     Dates: start: 202010, end: 202010
  3. FLUOROURACIL [Suspect]
     Active Substance: FLUOROURACIL
     Indication: Colorectal cancer metastatic
     Dosage: FOLFIRI REGIMEN 1 CYCLE
     Route: 065
     Dates: start: 202010, end: 202010

REACTIONS (5)
  - Drug intolerance [Recovered/Resolved]
  - Vomiting [Recovered/Resolved]
  - Circulatory collapse [Recovered/Resolved]
  - Cardiac disorder [Recovering/Resolving]
  - Toxic cardiomyopathy [Recovering/Resolving]

NARRATIVE: CASE EVENT DATE: 20201001
